FAERS Safety Report 9891612 (Version 2)
Quarter: 2014Q1

REPORT INFORMATION
  Report Type: Spontaneous
  Country: FR (occurrence: FR)
  Receive Date: 20140212
  Receipt Date: 20140220
  Transmission Date: 20141002
  Serious: Yes (Other)
  Sender: FDA-Public Use
  Company Number: FR-PFIZER INC-2014036471

PATIENT
  Age: 81 Year
  Sex: Female
  Weight: 51 kg

DRUGS (2)
  1. NEURONTIN [Suspect]
     Indication: STRESS
     Dosage: 100 MG, DAILY
     Dates: start: 2007, end: 2007
  2. NEURONTIN [Suspect]
     Indication: FATIGUE
     Dosage: 400 MG, DAILY
     Dates: start: 2007, end: 20070625

REACTIONS (42)
  - Off label use [Recovered/Resolved]
  - Hernia [Not Recovered/Not Resolved]
  - Abdominal infection [Not Recovered/Not Resolved]
  - Asthenia [Not Recovered/Not Resolved]
  - Blindness [Unknown]
  - Paralysis [Unknown]
  - General physical health deterioration [Not Recovered/Not Resolved]
  - Swelling face [Not Recovered/Not Resolved]
  - Local swelling [Not Recovered/Not Resolved]
  - Gingival disorder [Not Recovered/Not Resolved]
  - Muscular weakness [Not Recovered/Not Resolved]
  - Alopecia [Not Recovered/Not Resolved]
  - Palpitations [Recovered/Resolved]
  - White blood cell count increased [Not Recovered/Not Resolved]
  - Weight decreased [Not Recovered/Not Resolved]
  - Tendonitis [Not Recovered/Not Resolved]
  - Spinal disorder [Not Recovered/Not Resolved]
  - Urinary tract infection [Not Recovered/Not Resolved]
  - Dry skin [Not Recovered/Not Resolved]
  - Pyrexia [Unknown]
  - Cough [Unknown]
  - Malaise [Unknown]
  - Pain [Unknown]
  - Red blood cell count decreased [Unknown]
  - Tooth injury [Unknown]
  - Mouth injury [Unknown]
  - Injury [Unknown]
  - Tonsillar hypertrophy [Unknown]
  - Amnesia [Unknown]
  - Disorientation [Unknown]
  - Tinnitus [Unknown]
  - Decreased appetite [Unknown]
  - Bedridden [Unknown]
  - Swelling [Unknown]
  - Fatigue [Unknown]
  - Paraesthesia [Unknown]
  - Depression [Unknown]
  - Morbid thoughts [Unknown]
  - Skin discolouration [Unknown]
  - Skin fissures [Unknown]
  - Erythema [Unknown]
  - Hypokinesia [Unknown]
